FAERS Safety Report 13690849 (Version 5)
Quarter: 2017Q3

REPORT INFORMATION
  Report Type: Spontaneous
  Country: None (occurrence: JP)
  Receive Date: 20170626
  Receipt Date: 20170726
  Transmission Date: 20171127
  Serious: Yes (Hospitalization)
  Sender: FDA-Public Use
  Company Number: JP-MERZ NORTH AMERICA, INC.-17MRZ-00202

PATIENT
  Age: 69 Year
  Sex: Female
  Weight: 61 kg

DRUGS (7)
  1. PLACEBO [Suspect]
     Active Substance: UNSPECIFIED INGREDIENT
     Indication: MUSCLE SPASTICITY
     Dosage: 400 IU,1 IN 1-2
     Route: 030
     Dates: start: 20170516, end: 20170516
  2. SENNOSIDE A+B(SENNOSIDE A+B) [Concomitant]
     Indication: CONSTIPATION
     Dosage: 24 MG (24 MG,1 D)
     Route: 048
     Dates: start: 20120404
  3. ROSUVASTATIN CALCIUM. [Concomitant]
     Active Substance: ROSUVASTATIN CALCIUM
     Indication: HYPERLIPIDAEMIA
     Dosage: 2.5 MG (2.5 MG,1 D)
     Route: 048
     Dates: start: 20151006
  4. XEOMIN [Suspect]
     Active Substance: INCOBOTULINUMTOXINA
     Dosage: 400 IU,1 IN 1-2
     Route: 030
     Dates: start: 20160516
  5. XEOMIN [Suspect]
     Active Substance: INCOBOTULINUMTOXINA
     Indication: MUSCLE SPASTICITY
     Dosage: 400 IU,1 IN 1-2
     Route: 030
     Dates: start: 20160516
  6. MAGNESIUM OXIDE. [Concomitant]
     Active Substance: MAGNESIUM OXIDE
     Dosage: 660 MG (660 MG,1 D)
     Route: 048
     Dates: start: 20120522
  7. VALPROATE SODIUM. [Concomitant]
     Active Substance: VALPROATE SODIUM
     Indication: EPILEPSY
     Dosage: 800 MG (800 MG,1 D)
     Route: 048
     Dates: start: 20120526

REACTIONS (1)
  - Cellulitis [Recovered/Resolved]

NARRATIVE: CASE EVENT DATE: 20170607
